FAERS Safety Report 9840684 (Version 2)
Quarter: 2014Q1

REPORT INFORMATION
  Report Type: Spontaneous
  Country: US (occurrence: US)
  Receive Date: 20140124
  Receipt Date: 20140128
  Transmission Date: 20141002
  Serious: Yes (Death, Hospitalization, Other)
  Sender: FDA-Public Use
  Company Number: US-SA-2014SA009011

PATIENT
  Age: 59 Year
  Sex: Male

DRUGS (8)
  1. LOVENOX [Suspect]
     Indication: SPINAL CORD INFECTION
     Route: 065
     Dates: start: 20130108, end: 20130114
  2. LOVENOX [Interacting]
     Indication: SPINAL HAEMATOMA
     Route: 065
     Dates: start: 20130108, end: 20130114
  3. LOVENOX [Interacting]
     Indication: COLONIC HAEMATOMA
     Route: 065
     Dates: start: 20130108, end: 20130114
  4. LOVENOX [Interacting]
     Indication: GASTROINTESTINAL INFECTION
     Route: 065
     Dates: start: 20130108, end: 20130114
  5. IBUPROFEN [Interacting]
     Route: 065
     Dates: start: 20130101, end: 20130114
  6. HYDROMORPHONE [Suspect]
     Route: 065
     Dates: start: 20130101, end: 20130112
  7. HYDROMORPHONE [Suspect]
     Route: 065
     Dates: start: 20140113, end: 20140114
  8. NAFCILLIN [Concomitant]
     Dates: start: 20130101

REACTIONS (7)
  - Cerebral haemorrhage [Fatal]
  - Brain death [Fatal]
  - Hypertension [Unknown]
  - Aneurysm [Fatal]
  - Blood creatinine increased [Unknown]
  - Drug interaction [Unknown]
  - Platelet count increased [Unknown]
